FAERS Safety Report 26158361 (Version 3)
Quarter: 2025Q4

REPORT INFORMATION
  Report Type: Report from Study
  Country: None (occurrence: BR)
  Receive Date: 20251215
  Receipt Date: 20251224
  Transmission Date: 20260118
  Serious: Yes (Disabling, Other)
  Sender: ALNYLAM PHARMACEUTICALS
  Company Number: BR-ALNYLAM PHARMACEUTICALS, INC.-ALN-2025-007290

PATIENT
  Age: 9 Year

DRUGS (6)
  1. OXLUMO [Suspect]
     Active Substance: LUMASIRAN
     Indication: Primary hyperoxaluria
     Dosage: 6.5 MILLIGRAM, Q3M
  2. AMLODIPINE [Concomitant]
     Active Substance: AMLODIPINE BESYLATE
     Indication: Hypertension
     Dosage: UNK
     Route: 065
  3. CALCITRIOL [Concomitant]
     Active Substance: CALCITRIOL
     Indication: Supplementation therapy
     Dosage: UNK
     Route: 065
  4. OMEPRAZOLE [Concomitant]
     Active Substance: OMEPRAZOLE
     Indication: Gastric pH decreased
     Dosage: UNK
     Route: 065
  5. EPREX [Concomitant]
     Active Substance: ERYTHROPOIETIN
     Indication: Anaemia
     Dosage: UNK
     Route: 065
  6. VITAMIN D [Concomitant]
     Active Substance: VITAMIN D NOS
     Indication: Bone disorder
     Dosage: UNK
     Route: 065

REACTIONS (2)
  - Micturition disorder [Not Recovered/Not Resolved]
  - Disease progression [Not Recovered/Not Resolved]
